FAERS Safety Report 5723449-3 (Version None)
Quarter: 2008Q2

REPORT INFORMATION
  Report Type: 
  Country: None (occurrence: None)
  Receive Date: 20080424
  Receipt Date: 20080407
  Transmission Date: 20081010
  Serious: Yes (Hospitalization)
  Sender: FDA-Public Use
  Company Number: 042108

PATIENT
  Age: 73 Year
  Sex: Male

DRUGS (2)
  1. HYALSE (HYALURONIDASE) CP PHARMACEUTICALS LTD, UK [Suspect]
     Indication: ANAESTHESIA
     Dosage: 90 IU INJECTIONS 055
  2. LIDOCAINE [Concomitant]

REACTIONS (1)
  - EXOPHTHALMOS [None]
